FAERS Safety Report 10757764 (Version 1)
Quarter: 2015Q1

REPORT INFORMATION
  Report Type: Spontaneous
  Country: US (occurrence: None)
  Receive Date: 20150202
  Receipt Date: 20150202
  Transmission Date: 20150721
  Serious: Yes (Other)
  Sender: FDA-Public Use
  Company Number: None

PATIENT
  Age: 43 Year
  Sex: Male

DRUGS (1)
  1. BACLOFEN. [Suspect]
     Active Substance: BACLOFEN

REACTIONS (5)
  - Miosis [None]
  - No therapeutic response [None]
  - Toxicity to various agents [None]
  - Respiratory tract congestion [None]
  - Loss of consciousness [None]

NARRATIVE: CASE EVENT DATE: 20141208
